FAERS Safety Report 8819377 (Version 2)
Quarter: 2013Q1

REPORT INFORMATION
  Report Type: Spontaneous
  Country: US (occurrence: None)
  Receive Date: 20121003
  Receipt Date: 20121011
  Transmission Date: 20140127
  Serious: Yes (Other)
  Sender: FDA-Public Use
  Company Number: 201209036

PATIENT
  Age: 55 Year
  Sex: Male
  Weight: 90.72 kg

DRUGS (4)
  1. XIAFLEX [Suspect]
     Indication: DUPUYTREN^S CONTRACTURE
     Dosage: 0.58 MG, 1 IN 1 D, INTRALESIONAL
     Dates: start: 20120919, end: 20120919
  2. LIDOCAINE (LIDOCAINE) [Suspect]
     Dosage: 3 CC, INJECTION
     Dates: start: 20120919, end: 20120919
  3. MARCAINE [Suspect]
     Dosage: 3 CC, INJECTION
     Dates: start: 20120919, end: 20120919
  4. PRAVACHOL [Concomitant]

REACTIONS (4)
  - Syncope [None]
  - Hyperhidrosis [None]
  - Balance disorder [None]
  - Feeling abnormal [None]
